FAERS Safety Report 9476437 (Version 1)
Quarter: 2013Q3

REPORT INFORMATION
  Report Type: Spontaneous
  Country: US (occurrence: None)
  Receive Date: 20130823
  Receipt Date: 20130823
  Transmission Date: 20140515
  Serious: Yes (Disabling)
  Sender: FDA-Public Use
  Company Number: None

PATIENT
  Age: 43 Year
  Sex: Male

DRUGS (1)
  1. CIPRO [Suspect]
     Indication: URINARY TRACT INFECTION
     Dosage: ONE TAB, BID, ORAL
     Route: 048

REACTIONS (8)
  - Tendonitis [None]
  - Arthralgia [None]
  - Diarrhoea [None]
  - Anxiety [None]
  - Depression [None]
  - Suicidal ideation [None]
  - Tinnitus [None]
  - Paraesthesia [None]
